FAERS Safety Report 24693697 (Version 1)
Quarter: 2024Q4

REPORT INFORMATION
  Report Type: Spontaneous
  Country: CN (occurrence: CN)
  Receive Date: 20241204
  Receipt Date: 20241204
  Transmission Date: 20250114
  Serious: Yes (Other)
  Sender: AMNEAL
  Company Number: CN-AMNEAL PHARMACEUTICALS-2024-AMRX-04375

PATIENT
  Age: 60 Year
  Sex: Female

DRUGS (1)
  1. AZACITIDINE [Suspect]
     Active Substance: AZACITIDINE
     Indication: Myeloid leukaemia
     Dosage: UNK
     Route: 065

REACTIONS (1)
  - Dermatomyositis [Unknown]
